FAERS Safety Report 4906869-6 (Version None)
Quarter: 2006Q1

REPORT INFORMATION
  Report Type: 
  Country: None (occurrence: None)
  Receive Date: 20060207
  Receipt Date: 20060123
  Transmission Date: 20060701
  Serious: Yes (Death, Hospitalization)
  Sender: FDA-Public Use
  Company Number: BR-2006-001171

PATIENT
  Age: 20 Year
  Sex: Male

DRUGS (1)
  1. BETAFERON (INTERFERON BETA - 1B) INJECTION, 250 UG [Suspect]
     Indication: MULTIPLE SCLEROSIS
     Dosage: 8 MIU, EVERY 3D, SUBCUTANEOUS
     Route: 058
     Dates: start: 20030819, end: 20060122

REACTIONS (13)
  - ABDOMINAL PAIN [None]
  - BRONCHOPNEUMONIA [None]
  - CHILLS [None]
  - CONDITION AGGRAVATED [None]
  - CONFUSIONAL STATE [None]
  - DEHYDRATION [None]
  - HEADACHE [None]
  - HICCUPS [None]
  - MOVEMENT DISORDER [None]
  - MULTIPLE SCLEROSIS [None]
  - MUSCLE ATROPHY [None]
  - RESPIRATORY FAILURE [None]
  - VOMITING [None]
